FAERS Safety Report 20846591 (Version 1)
Quarter: 2022Q2

REPORT INFORMATION
  Report Type: Spontaneous
  Country: IN (occurrence: IN)
  Receive Date: 20220518
  Receipt Date: 20220518
  Transmission Date: 20220720
  Serious: Yes (Hospitalization)
  Sender: FDA-Public Use
  Company Number: IN-PFIZER INC-2021162135

PATIENT
  Age: 56 Year
  Sex: Female

DRUGS (1)
  1. AROMASIN [Suspect]
     Active Substance: EXEMESTANE
     Indication: Breast cancer metastatic
     Dosage: 25 MG, 1X/DAY
     Route: 048
     Dates: start: 20181221

REACTIONS (21)
  - Hypersensitivity pneumonitis [Unknown]
  - COVID-19 pneumonia [Unknown]
  - Hypothyroidism [Unknown]
  - Diabetes mellitus [Unknown]
  - Cardiomyopathy [Unknown]
  - Left ventricular dysfunction [Unknown]
  - Cough [Unknown]
  - Heart rate increased [Unknown]
  - Blood pressure increased [Recovered/Resolved]
  - Gastroenteritis [Unknown]
  - Dehydration [Unknown]
  - Pyrexia [Unknown]
  - Nausea [Unknown]
  - Vomiting [Unknown]
  - Dyspnoea exertional [Unknown]
  - Myalgia [Unknown]
  - Asthenia [Unknown]
  - Cardiac disorder [Unknown]
  - Blood glucose increased [Unknown]
  - Body temperature increased [Unknown]
  - Dry mouth [Recovered/Resolved]

NARRATIVE: CASE EVENT DATE: 20210523
